FAERS Safety Report 19358418 (Version 2)
Quarter: 2021Q4

REPORT INFORMATION
  Report Type: Spontaneous
  Country: US (occurrence: US)
  Receive Date: 20210531
  Receipt Date: 20211008
  Transmission Date: 20220303
  Serious: No
  Sender: FDA-Public Use
  Company Number: US-SA-SAC20210528000778

PATIENT
  Sex: Female

DRUGS (14)
  1. DUPIXENT [Suspect]
     Active Substance: DUPILUMAB
     Indication: Osteoporosis
     Route: 058
  2. DUPIXENT [Suspect]
     Active Substance: DUPILUMAB
     Indication: Asthma
  3. SINGULAIR [Concomitant]
     Active Substance: MONTELUKAST SODIUM
  4. SYNTHROID [Concomitant]
     Active Substance: LEVOTHYROXINE SODIUM
  5. LORAZEPAM [Concomitant]
     Active Substance: LORAZEPAM
  6. IPRATROPIUM BROMIDE [Concomitant]
     Active Substance: IPRATROPIUM BROMIDE
  7. MEROPENEM [Concomitant]
     Active Substance: MEROPENEM
  8. ADVAIR HFA [Concomitant]
     Active Substance: FLUTICASONE PROPIONATE\SALMETEROL XINAFOATE
     Dosage: 250-50 DISKUS
  9. ALPRAZOLAM [Concomitant]
     Active Substance: ALPRAZOLAM
  10. PREDNISONE [Concomitant]
     Active Substance: PREDNISONE
  11. VFEND [Concomitant]
     Active Substance: VORICONAZOLE
  12. ALBUTEROL [Concomitant]
     Active Substance: ALBUTEROL
     Dosage: 2.5 MG/0.5 ML SOL
  13. CAYSTON [Concomitant]
     Active Substance: AZTREONAM
  14. EZETIMIBE [Concomitant]
     Active Substance: EZETIMIBE

REACTIONS (6)
  - Blood cholesterol increased [Unknown]
  - Erythema [Unknown]
  - Skin tightness [Unknown]
  - Pyrexia [Unknown]
  - Fatigue [Unknown]
  - Product use in unapproved indication [Unknown]
